FAERS Safety Report 22178775 (Version 4)
Quarter: 2023Q4

REPORT INFORMATION
  Report Type: Spontaneous
  Country: JP (occurrence: JP)
  Receive Date: 20230405
  Receipt Date: 20231124
  Transmission Date: 20240109
  Serious: Yes (Hospitalization, Other)
  Sender: FDA-Public Use
  Company Number: JP-002147023-NVSJ2023JP005524

PATIENT
  Age: 70 Year
  Sex: Male
  Weight: 47 kg

DRUGS (4)
  1. COSENTYX [Suspect]
     Active Substance: SECUKINUMAB
     Indication: Psoriasis
     Dosage: 150 MG, BID
     Route: 058
     Dates: start: 20220401, end: 202212
  2. BETAMETHASONE\CALCIPOTRIENE [Concomitant]
     Active Substance: BETAMETHASONE\CALCIPOTRIENE
     Indication: Psoriasis
     Dosage: UNK
     Route: 003
  3. OTEZLA [Concomitant]
     Active Substance: APREMILAST
     Indication: Psoriasis
     Dosage: 30 MG, BID
     Route: 048
  4. BETAMETHASONE BUTYRATE PROPIONATE\MAXACALCITOL [Concomitant]
     Active Substance: BETAMETHASONE BUTYRATE PROPIONATE\MAXACALCITOL
     Indication: Psoriasis
     Dosage: UNK
     Route: 003

REACTIONS (4)
  - Bladder cancer [Recovering/Resolving]
  - Urinary occult blood positive [Unknown]
  - Haematuria [Unknown]
  - Bladder cancer recurrent [Unknown]

NARRATIVE: CASE EVENT DATE: 20221001
